FAERS Safety Report 19840578 (Version 2)
Quarter: 2021Q3

REPORT INFORMATION
  Report Type: Spontaneous
  Country: AU (occurrence: AU)
  Receive Date: 20210916
  Receipt Date: 20210921
  Transmission Date: 20211014
  Serious: Yes (Death, Life-Threatening, Other)
  Sender: FDA-Public Use
  Company Number: AU-BAUSCH-BL-2021-031116

PATIENT

DRUGS (21)
  1. FLUDARABINE [Suspect]
     Active Substance: FLUDARABINE PHOSPHATE
     Indication: MANTLE CELL LYMPHOMA
     Route: 065
  2. DOXORUBICIN [Suspect]
     Active Substance: DOXORUBICIN
     Indication: MANTLE CELL LYMPHOMA
     Route: 065
  3. IFOSFAMIDE. [Suspect]
     Active Substance: IFOSFAMIDE
     Indication: MANTLE CELL LYMPHOMA
     Route: 065
  4. CHLORAMBUCIL [Suspect]
     Active Substance: CHLORAMBUCIL
     Indication: MANTLE CELL LYMPHOMA
     Route: 065
  5. MELPHALAN. [Suspect]
     Active Substance: MELPHALAN
     Indication: MANTLE CELL LYMPHOMA
     Route: 065
  6. BENDAMUSTINE [Suspect]
     Active Substance: BENDAMUSTINE
     Indication: MANTLE CELL LYMPHOMA
     Route: 065
  7. IBRUTINIB [Suspect]
     Active Substance: IBRUTINIB
     Indication: MANTLE CELL LYMPHOMA
     Route: 065
  8. CYTARABINE. [Suspect]
     Active Substance: CYTARABINE
     Indication: MANTLE CELL LYMPHOMA
     Route: 065
  9. BUSULFAN. [Suspect]
     Active Substance: BUSULFAN
     Indication: MANTLE CELL LYMPHOMA
     Route: 065
  10. RITUXIMAB. [Suspect]
     Active Substance: RITUXIMAB
     Indication: MANTLE CELL LYMPHOMA
     Route: 065
  11. PREDNISONE. [Suspect]
     Active Substance: PREDNISONE
     Indication: MANTLE CELL LYMPHOMA
     Route: 065
  12. CARMUSTINE. [Suspect]
     Active Substance: CARMUSTINE
     Indication: MANTLE CELL LYMPHOMA
     Route: 065
  13. METHOTREXATE. [Suspect]
     Active Substance: METHOTREXATE
     Indication: MANTLE CELL LYMPHOMA
     Route: 065
  14. PREDNISOLONE. [Suspect]
     Active Substance: PREDNISOLONE
     Indication: MANTLE CELL LYMPHOMA
     Route: 065
  15. CARBOPLATIN. [Suspect]
     Active Substance: CARBOPLATIN
     Indication: MANTLE CELL LYMPHOMA
     Route: 065
  16. EPIRUBICIN [Suspect]
     Active Substance: EPIRUBICIN
     Indication: MANTLE CELL LYMPHOMA
     Route: 065
  17. CISPLATIN. [Suspect]
     Active Substance: CISPLATIN
     Indication: MANTLE CELL LYMPHOMA
     Route: 065
  18. VINCRISTINE [Suspect]
     Active Substance: VINCRISTINE
     Indication: MANTLE CELL LYMPHOMA
     Route: 065
  19. ETOPOSIDE. [Suspect]
     Active Substance: ETOPOSIDE
     Indication: MANTLE CELL LYMPHOMA
     Route: 065
  20. CYCLOPHOSPHAMIDE. [Suspect]
     Active Substance: CYCLOPHOSPHAMIDE
     Indication: MANTLE CELL LYMPHOMA
     Route: 065
  21. METHYLPREDNISOLONE. [Suspect]
     Active Substance: METHYLPREDNISOLONE
     Indication: MANTLE CELL LYMPHOMA
     Route: 065

REACTIONS (1)
  - Aspergillus infection [Fatal]
